FAERS Safety Report 18410613 (Version 3)
Quarter: 2020Q4

REPORT INFORMATION
  Report Type: Spontaneous
  Country: US (occurrence: US)
  Receive Date: 20201021
  Receipt Date: 20201112
  Transmission Date: 20210114
  Serious: No
  Sender: FDA-Public Use
  Company Number: US-LEXICON PHARMACEUTICALS, INC-20-1606-00804

PATIENT
  Age: 65 Year
  Sex: Male

DRUGS (3)
  1. XERMELO [Suspect]
     Active Substance: TELOTRISTAT ETHYL
     Indication: CARCINOID TUMOUR
     Dates: start: 20190726
  2. GABAPENTIN. [Concomitant]
     Active Substance: GABAPENTIN
  3. OXYCODONE [Concomitant]
     Active Substance: OXYCODONE

REACTIONS (4)
  - Depression [Recovering/Resolving]
  - Diarrhoea [Unknown]
  - Headache [Not Recovered/Not Resolved]
  - Flatulence [Unknown]
